FAERS Safety Report 21087760 (Version 1)
Quarter: 2022Q3

REPORT INFORMATION
  Report Type: Spontaneous
  Country: US (occurrence: None)
  Receive Date: 20220714
  Receipt Date: 20220714
  Transmission Date: 20221027
  Serious: Yes (Life-Threatening, Disabling)
  Sender: FDA-Public Use
  Company Number: None

PATIENT
  Age: 60 Year
  Sex: Female
  Weight: 40.95 kg

DRUGS (19)
  1. PROLIA [Suspect]
     Active Substance: DENOSUMAB
     Indication: Osteoporosis
     Dosage: OTHER FREQUENCY : EVERY 6 MONTHS;?
     Route: 058
     Dates: start: 20130731, end: 20191231
  2. PROLIA [Suspect]
     Active Substance: DENOSUMAB
     Indication: Fracture
  3. Walker [Concomitant]
  4. foot-to-thigh leg brace [Concomitant]
  5. TENS unit [Concomitant]
  6. OXYCODONE [Concomitant]
     Active Substance: OXYCODONE
  7. DIAZEPAM [Concomitant]
     Active Substance: DIAZEPAM
  8. AMITIZA [Concomitant]
     Active Substance: LUBIPROSTONE
  9. IvIg (immunoglobulin) [Concomitant]
  10. RECLAST [Concomitant]
     Active Substance: ZOLEDRONIC ACID
  11. CALCIUM [Concomitant]
     Active Substance: CALCIUM
  12. VITAMIN D [Concomitant]
     Active Substance: VITAMIN D NOS
  13. VITAMIN K1 [Concomitant]
     Active Substance: PHYTONADIONE
  14. MENAQUINONE 6 [Concomitant]
     Active Substance: MENAQUINONE 6
  15. VITAMIN C [Concomitant]
     Active Substance: ASCORBIC ACID
  16. AMINO ACIDS [Concomitant]
     Active Substance: AMINO ACIDS
  17. MAGNESIUM CITRATE [Concomitant]
     Active Substance: MAGNESIUM CITRATE
  18. COENZYME Q10 [Concomitant]
     Active Substance: DIETARY SUPPLEMENT\UBIDECARENONE
  19. LUTEIN [Concomitant]
     Active Substance: LUTEIN

REACTIONS (9)
  - Immunodeficiency [None]
  - Herpes zoster [None]
  - Malaise [None]
  - Fatigue [None]
  - Bone density decreased [None]
  - Tibia fracture [None]
  - Ankle fracture [None]
  - Foot fracture [None]
  - Spinal compression fracture [None]

NARRATIVE: CASE EVENT DATE: 20130731
